FAERS Safety Report 12689480 (Version 2)
Quarter: 2016Q3

REPORT INFORMATION
  Report Type: Report from Study
  Country: IT (occurrence: IT)
  Receive Date: 20160826
  Receipt Date: 20160909
  Transmission Date: 20161109
  Serious: Yes (Other)
  Sender: FDA-Public Use
  Company Number: IT-GLAXOSMITHKLINE-IT2016123953

PATIENT
  Age: 51 Year
  Sex: Female
  Weight: 48 kg

DRUGS (14)
  1. RITONAVIR. [Suspect]
     Active Substance: RITONAVIR
     Indication: HIV INFECTION
     Dosage: UNK
     Route: 065
  2. RAMIPRIL. [Concomitant]
     Active Substance: RAMIPRIL
     Dosage: UNK
     Dates: start: 20150114
  3. DOLUTEGRAVIR [Suspect]
     Active Substance: DOLUTEGRAVIR
     Indication: HIV INFECTION
     Dosage: UNK
     Route: 065
  4. CITALOPRAM [Concomitant]
     Active Substance: CITALOPRAM HYDROBROMIDE
     Dosage: UNK
     Dates: start: 20001122
  5. NEVIRAPINE. [Concomitant]
     Active Substance: NEVIRAPINE
  6. OXAZEPAM. [Concomitant]
     Active Substance: OXAZEPAM
     Dosage: UNK
     Dates: start: 20160204
  7. CHOLECALCIFEROL [Concomitant]
     Active Substance: CHOLECALCIFEROL
     Dosage: UNK
     Dates: start: 20160204
  8. 3TC [Suspect]
     Active Substance: LAMIVUDINE
     Indication: HIV INFECTION
     Dosage: UNK
     Route: 065
  9. ABACAVIR. [Concomitant]
     Active Substance: ABACAVIR
  10. TENOFOVIR DISOPROXIL FUMARATE. [Suspect]
     Active Substance: TENOFOVIR DISOPROXIL FUMARATE
     Indication: HIV INFECTION
     Dosage: 1 DF, QD
     Route: 048
     Dates: start: 20120627, end: 20141110
  11. ROSUVASTATIN. [Concomitant]
     Active Substance: ROSUVASTATIN
     Dosage: UNK
     Dates: start: 20160204
  12. LISPRO-INSULIN [Suspect]
     Active Substance: INSULIN LISPRO
     Dosage: UNK
     Dates: start: 20150114
  13. DARUNAVIR [Suspect]
     Active Substance: DARUNAVIR
     Indication: HIV INFECTION
     Dosage: UNK
     Route: 065
  14. EFAVIRENZ [Concomitant]
     Active Substance: EFAVIRENZ

REACTIONS (11)
  - Hypertension [Unknown]
  - Traumatic fracture [None]
  - Osteoporosis [Unknown]
  - Diabetes mellitus [Unknown]
  - Vitamin D deficiency [Unknown]
  - Insomnia [Unknown]
  - Depression [Unknown]
  - Hypercholesterolaemia [Unknown]
  - Foot fracture [Recovered/Resolved]
  - Nightmare [Unknown]
  - Blood alkaline phosphatase increased [None]

NARRATIVE: CASE EVENT DATE: 20140810
